FAERS Safety Report 11521837 (Version 1)
Quarter: 2015Q3

REPORT INFORMATION
  Report Type: Spontaneous
  Country: US (occurrence: US)
  Receive Date: 20150918
  Receipt Date: 20150918
  Transmission Date: 20151125
  Serious: No
  Sender: FDA-Public Use
  Company Number: US-ROCHE-713161

PATIENT
  Age: 48 Year
  Sex: Male

DRUGS (2)
  1. RIBASPHERE RIBAPAK [Suspect]
     Active Substance: RIBAVIRIN
     Indication: HEPATITIS C
     Dosage: DAILY DOSAGE
     Route: 065
  2. PEGASYS [Suspect]
     Active Substance: PEGINTERFERON ALFA-2A
     Indication: HEPATITIS C
     Dosage: FORM: PRE-FILLED SYRINGES
     Route: 058

REACTIONS (11)
  - Arthralgia [Not Recovered/Not Resolved]
  - Chromaturia [Not Recovered/Not Resolved]
  - Urine output decreased [Not Recovered/Not Resolved]
  - Chills [Not Recovered/Not Resolved]
  - Ocular hyperaemia [Unknown]
  - Anhidrosis [Unknown]
  - Dry mouth [Not Recovered/Not Resolved]
  - Dizziness [Unknown]
  - Mood swings [Unknown]
  - Decreased appetite [Not Recovered/Not Resolved]
  - Anger [Unknown]

NARRATIVE: CASE EVENT DATE: 20100625
